FAERS Safety Report 17298711 (Version 1)
Quarter: 2020Q1

REPORT INFORMATION
  Report Type: Spontaneous
  Country: US (occurrence: US)
  Receive Date: 20200121
  Receipt Date: 20200121
  Transmission Date: 20200409
  Serious: No
  Sender: FDA-Public Use
  Company Number: None

PATIENT
  Age: 63 Year
  Sex: Female
  Weight: 98.1 kg

DRUGS (12)
  1. COCO CURCUMIN [Concomitant]
  2. SUPPORT HOSE [Concomitant]
  3. TURMERIC [Concomitant]
     Active Substance: HERBALS\TURMERIC
  4. A [Concomitant]
  5. BOSWELL SERATA [Concomitant]
  6. C [Concomitant]
  7. MINOCYCLINE CAPS 100 MG [Suspect]
     Active Substance: MINOCYCLINE HYDROCHLORIDE
     Indication: ROSACEA
     Dosage: ?          QUANTITY:1 TABLET(S);?
     Route: 048
  8. METRODYAZINOLE [Concomitant]
  9. UREA CREAM [Concomitant]
     Active Substance: UREA
  10. VITAMIN D3 [Concomitant]
     Active Substance: CHOLECALCIFEROL
  11. FISH OIL [Concomitant]
     Active Substance: FISH OIL
  12. CALCIUM/MAGNESIUM [Concomitant]
     Active Substance: CALCIUM\MAGNESIUM

REACTIONS (1)
  - Skin hyperpigmentation [None]
